FAERS Safety Report 6155190-X (Version None)
Quarter: 2009Q2

REPORT INFORMATION
  Report Type: 
  Country: None (occurrence: None)
  Receive Date: 20090415
  Receipt Date: 20090403
  Transmission Date: 20091009
  Serious: Yes (Other)
  Sender: FDA-Public Use
  Company Number: US-JNJFOC-20081004735

PATIENT
  Sex: Female
  Weight: 53.07 kg

DRUGS (14)
  1. REMICADE [Suspect]
     Route: 042
  2. REMICADE [Suspect]
     Route: 042
  3. REMICADE [Suspect]
     Indication: CROHN'S DISEASE
     Route: 042
  4. FLU SHOT [Interacting]
     Indication: IMMUNISATION
     Route: 030
  5. FOSAMAX [Concomitant]
  6. FISH OIL [Concomitant]
  7. CALCIUM CITRATE [Concomitant]
  8. COQ10 [Concomitant]
  9. VITAMIN E [Concomitant]
  10. GLUCOSAMINE [Concomitant]
  11. MULTI-VITAMINS [Concomitant]
  12. ASCORBIC ACID [Concomitant]
  13. TYLENOL [Concomitant]
  14. CLARITIN [Concomitant]

REACTIONS (3)
  - DRUG INTERACTION [None]
  - HYPERTENSION [None]
  - POLYARTHRITIS [None]
